FAERS Safety Report 13835778 (Version 1)
Quarter: 2017Q3

REPORT INFORMATION
  Report Type: Spontaneous
  Country: IN (occurrence: IN)
  Receive Date: 20170804
  Receipt Date: 20170804
  Transmission Date: 20171127
  Serious: Yes (Disabling)
  Sender: FDA-Public Use
  Company Number: IN-SA-2017SA139106

PATIENT
  Age: 79 Year
  Sex: Male
  Weight: 74 kg

DRUGS (3)
  1. PLAVIX [Suspect]
     Active Substance: CLOPIDOGREL BISULFATE
     Indication: CEREBROVASCULAR ACCIDENT
     Dosage: VIA RT (RYLE^S TUBE)
     Dates: start: 20170606, end: 20170712
  2. ASPIRIN. [Concomitant]
     Active Substance: ASPIRIN
  3. ROSUVASTATIN. [Concomitant]
     Active Substance: ROSUVASTATIN

REACTIONS (1)
  - Activated partial thromboplastin time prolonged [Not Recovered/Not Resolved]
